FAERS Safety Report 13880469 (Version 1)
Quarter: 2017Q3

REPORT INFORMATION
  Report Type: Spontaneous
  Country: US (occurrence: US)
  Receive Date: 20170818
  Receipt Date: 20170818
  Transmission Date: 20171127
  Serious: No
  Sender: FDA-Public Use
  Company Number: US-B.I. PHARMACEUTICALS,INC./RIDGEFIELD-2017-BI-044967

PATIENT
  Age: 28 Year
  Sex: Male

DRUGS (6)
  1. NAPROXEN. [Concomitant]
     Active Substance: NAPROXEN
     Indication: PRODUCT USED FOR UNKNOWN INDICATION
     Dosage: ONE TABLET TWICE A DAY;  FORM STRENGTH: 500 MG; FORMULATION: TABLET
     Route: 048
  2. GLUCAPHAGE [Concomitant]
     Indication: BLOOD GLUCOSE INCREASED
     Dosage: TWICE A DAY WITH MEALS;  FORM STRENGTH: 1000 MG; FORMULATION: TABLET
     Route: 048
  3. JARDIANCE [Suspect]
     Active Substance: EMPAGLIFLOZIN
     Indication: BLOOD GLUCOSE INCREASED
     Dosage: ONE TABLET ONCE A DAY;  FORM STRENGTH: 25 MG; FORMULATION: TABLET? ADMINISTRATION CORRECT? YES ?ACTI
     Route: 048
     Dates: start: 20170712
  4. ZOLOFT [Concomitant]
     Active Substance: SERTRALINE HYDROCHLORIDE
     Indication: PRODUCT USED FOR UNKNOWN INDICATION
     Dosage: TWO TABLETS DAILY;  FORM STRENGTH: 100 MG; FORMULATION: TABLET
     Route: 048
  5. AMBEIN [Concomitant]
     Indication: SLEEP DISORDER
     Dosage: ONE TABLET AS NEEDED;  FORM STRENGTH: 5 MG; FORMULATION: TABLET
     Route: 048
  6. LISINOPRIL. [Concomitant]
     Active Substance: LISINOPRIL
     Indication: PRODUCT USED FOR UNKNOWN INDICATION
     Dosage: ONE TABLET DAILY;  FORM STRENGTH: 10 MG; FORMULATION: TABLET
     Route: 048

REACTIONS (3)
  - Dysgeusia [Not Recovered/Not Resolved]
  - Nausea [Not Recovered/Not Resolved]
  - Pollakiuria [Not Recovered/Not Resolved]

NARRATIVE: CASE EVENT DATE: 201707
